FAERS Safety Report 9121465 (Version 6)
Quarter: 2015Q4

REPORT INFORMATION
  Report Type: Spontaneous
  Country: US (occurrence: US)
  Receive Date: 20130108
  Receipt Date: 20151203
  Transmission Date: 20160305
  Serious: Yes (Hospitalization, Other)
  Sender: FDA-Public Use
  Company Number: US-RB-048025-12

PATIENT
  Age: 65 Year
  Sex: Female
  Weight: 61.2 kg

DRUGS (2)
  1. SYNTHROID [Concomitant]
     Active Substance: LEVOTHYROXINE SODIUM
     Indication: PRODUCT USED FOR UNKNOWN INDICATION
     Dosage: UNK
     Route: 065
  2. MUCINEX [Suspect]
     Active Substance: GUAIFENESIN
     Indication: PRODUCT USED FOR UNKNOWN INDICATION
     Dosage: UNK
     Route: 048
     Dates: start: 20121218, end: 20121220

REACTIONS (7)
  - Blood pressure increased [Recovered/Resolved]
  - Confusional state [Recovered/Resolved]
  - Cystitis [None]
  - Amnesia [Recovered/Resolved]
  - Cerebrovascular accident [Unknown]
  - Feeling abnormal [Recovered/Resolved]
  - Disorientation [Recovered/Resolved]

NARRATIVE: CASE EVENT DATE: 20121220
